FAERS Safety Report 8848164 (Version 1)
Quarter: 2012Q4

REPORT INFORMATION
  Report Type: 
  Country: US (occurrence: US)
  Receive Date: 20121018
  Receipt Date: 20121018
  Transmission Date: 20130627
  Serious: Yes (Other)
  Sender: FDA-Public Use
  Company Number: US-009507513-1210USA006658

PATIENT
  Age: 79 None
  Sex: Female
  Weight: 82.99 kg

DRUGS (8)
  1. ZOCOR [Suspect]
     Indication: BLOOD CHOLESTEROL ABNORMAL
     Dosage: UNK
     Route: 048
  2. LIPTOR [Suspect]
     Indication: BLOOD CHOLESTEROL ABNORMAL
     Dosage: UNK
  3. GABAPENTIN [Suspect]
     Indication: ARTHRITIS
     Dosage: UNK
  4. CELEBREX [Concomitant]
     Indication: ARTHRITIS
     Dosage: 200 mg, daily
     Dates: start: 20120917, end: 20120920
  5. PLAVIX [Concomitant]
     Indication: CARDIAC DISORDER
     Dosage: UNK
  6. HYDROCHLOROTHIAZIDE [Concomitant]
     Indication: OEDEMA PERIPHERAL
     Dosage: 25 mg, daily
     Dates: start: 2004
  7. ATENOLOL [Concomitant]
     Indication: CARDIAC DISORDER
     Dosage: 25 mg, daily
  8. ASPIRIN [Concomitant]
     Indication: CARDIAC DISORDER
     Dosage: 81 mg, daily

REACTIONS (17)
  - Muscle injury [Unknown]
  - Weight increased [Unknown]
  - Disturbance in attention [Unknown]
  - Hallucination [Unknown]
  - Oedema peripheral [Not Recovered/Not Resolved]
  - Musculoskeletal stiffness [Not Recovered/Not Resolved]
  - Gait disturbance [Unknown]
  - Pain in extremity [Not Recovered/Not Resolved]
  - Dyspnoea [Unknown]
  - Gastric dilatation [Not Recovered/Not Resolved]
  - Abdominal pain upper [Not Recovered/Not Resolved]
  - Nausea [Not Recovered/Not Resolved]
  - Myalgia [Unknown]
  - Drug interaction [Unknown]
  - Drug ineffective [Unknown]
  - Abdominal distension [None]
  - Contraindication to medical treatment [None]
